FAERS Safety Report 21075833 (Version 1)
Quarter: 2022Q3

REPORT INFORMATION
  Report Type: Spontaneous
  Country: US (occurrence: None)
  Receive Date: 20220712
  Receipt Date: 20220712
  Transmission Date: 20221026
  Serious: Yes (Other)
  Sender: FDA-Public Use
  Company Number: None

PATIENT
  Age: 45 Year
  Sex: Female
  Weight: 69.75 kg

DRUGS (3)
  1. METRONIDAZOLE [Suspect]
     Active Substance: METRONIDAZOLE
     Indication: Bacterial vulvovaginitis
     Dosage: FREQUENCY : TWICE A DAY;?
     Route: 048
     Dates: start: 20220701, end: 20220707
  2. IBUPROFEN [Concomitant]
     Active Substance: IBUPROFEN
  3. Iron gummies [Concomitant]

REACTIONS (4)
  - Chromaturia [None]
  - Epistaxis [None]
  - Procedural pain [None]
  - Ultrasound uterus [None]

NARRATIVE: CASE EVENT DATE: 20220701
